FAERS Safety Report 14690880 (Version 1)
Quarter: 2018Q1

REPORT INFORMATION
  Report Type: Spontaneous
  Country: TW (occurrence: TW)
  Receive Date: 20180328
  Receipt Date: 20180328
  Transmission Date: 20180509
  Serious: Yes (Other)
  Sender: FDA-Public Use
  Company Number: TW-MYLANLABS-2018M1018520

PATIENT
  Age: 55 Year
  Sex: Female

DRUGS (5)
  1. OXALIPLATIN. [Suspect]
     Active Substance: OXALIPLATIN
     Indication: PANCREATIC CARCINOMA
     Dosage: 85 MG/M2 ON DAY 1 DURING CONDITIONING, FOLLOWED BY 3-MONTH MAINTENANCE; 2-HOUR INFUSIONS
     Route: 050
     Dates: start: 201009, end: 201012
  2. FOLINIC ACID [Suspect]
     Active Substance: LEUCOVORIN
     Indication: PANCREATIC CARCINOMA
     Dosage: 150 MG/M2 ON DAY 1 AND 2 BIWEEKLY DURING CONDITIONING, FOLLOWED BY 3-MONTH MAINTENANCE; 48-HOUR I...
     Route: 050
     Dates: start: 201009, end: 201012
  3. GEMCITABINE [Suspect]
     Active Substance: GEMCITABINE\GEMCITABINE HYDROCHLORIDE
     Dosage: 400 MG/M2 WEEKLY ALONG WITH RADIATION, FOLLOWED BY 3-MONTH MAINTENANCE
     Route: 065
     Dates: start: 201012
  4. GEMCITABINE [Suspect]
     Active Substance: GEMCITABINE\GEMCITABINE HYDROCHLORIDE
     Indication: PANCREATIC CARCINOMA
     Dosage: 800 MG/M2 ON DAY 1 DURING CONDITIONING, FOLLOWED BY 3-MONTH MAINTENANCE
     Route: 065
     Dates: start: 201009
  5. FLUOROURACIL. [Suspect]
     Active Substance: FLUOROURACIL
     Indication: PANCREATIC CARCINOMA
     Dosage: 3000 MG/M2 ON DAY 1 AND 2 BIWEEKLY DURING CONDITIONING, FOLLOWED BY 3-MONTH MAINTENANCE; 48-HOUR ...
     Route: 050
     Dates: start: 201009, end: 201012

REACTIONS (7)
  - Diarrhoea [Unknown]
  - Peripheral sensory neuropathy [Unknown]
  - Leukopenia [Unknown]
  - Stomatitis [Unknown]
  - Anaemia [Unknown]
  - Vomiting [Unknown]
  - Nausea [Unknown]
